FAERS Safety Report 12893709 (Version 5)
Quarter: 2023Q2

REPORT INFORMATION
  Report Type: Report from Study
  Country: JP (occurrence: JP)
  Receive Date: 20161028
  Receipt Date: 20230418
  Transmission Date: 20230721
  Serious: Yes (Hospitalization, Other)
  Sender: FDA-Public Use
  Company Number: JP-PFIZER INC-2016501753

PATIENT
  Age: 3 Year
  Sex: Female
  Weight: 15 kg

DRUGS (14)
  1. SIROLIMUS [Suspect]
     Active Substance: SIROLIMUS
     Indication: Lymphoedema
     Dosage: 0.5 MG, 1X/DAY
     Route: 048
     Dates: start: 20150327, end: 20150624
  2. SIROLIMUS [Suspect]
     Active Substance: SIROLIMUS
     Dosage: 1 MG, 1X/DAY
     Route: 048
     Dates: start: 20150624, end: 20151013
  3. SIROLIMUS [Suspect]
     Active Substance: SIROLIMUS
     Dosage: 2 MG, 1X/DAY
     Route: 048
     Dates: start: 20151013, end: 20151020
  4. SIROLIMUS [Suspect]
     Active Substance: SIROLIMUS
     Dosage: 3 MG, 1X/DAY
     Route: 048
     Dates: start: 20151020, end: 20151023
  5. SIROLIMUS [Suspect]
     Active Substance: SIROLIMUS
     Dosage: 1 MG, 1X/DAY
     Route: 048
     Dates: start: 20151023
  6. PULMICORT RESPULES [Concomitant]
     Active Substance: BUDESONIDE
     Dosage: UNK
     Route: 055
  7. LASIX [Concomitant]
     Active Substance: FUROSEMIDE
     Dosage: UNK
     Route: 048
  8. SINGULAIR [Concomitant]
     Active Substance: MONTELUKAST SODIUM
     Dosage: UNK
     Route: 048
  9. CEFCAPENE PIVOXIL HYDROCHLORIDE HYDRATE [Concomitant]
     Active Substance: CEFCAPENE PIVOXIL HYDROCHLORIDE HYDRATE
     Dosage: UNK
     Route: 048
     Dates: start: 20150425, end: 20150501
  10. TULOBUTEROL TAPE [Concomitant]
     Dosage: UNK
     Route: 062
     Dates: start: 20150427, end: 20150430
  11. TRICHLORMETHIAZIDE [Concomitant]
     Active Substance: TRICHLORMETHIAZIDE
     Dosage: UNK
     Route: 048
     Dates: start: 20151020
  12. SPIRONOLACTONE [Concomitant]
     Active Substance: SPIRONOLACTONE
     Dosage: UNK
     Route: 048
     Dates: start: 20151020
  13. BEZAFIBRATE [Concomitant]
     Active Substance: BEZAFIBRATE
     Dosage: UNK
     Route: 048
     Dates: start: 20151024, end: 20151106
  14. SOLU-CORTEF [Concomitant]
     Active Substance: HYDROCORTISONE SODIUM SUCCINATE
     Dosage: UNK
     Route: 065
     Dates: start: 20151015, end: 20151022

REACTIONS (8)
  - Hyperlipidaemia [Recovered/Resolved]
  - Bronchitis [Recovered/Resolved]
  - Asthma [Recovered/Resolved]
  - Pneumothorax [Recovered/Resolved]
  - Pericardial effusion [Recovered/Resolved]
  - Hypogammaglobulinaemia [Recovered/Resolved]
  - Off label use [Unknown]
  - Wrong technique in product usage process [Unknown]

NARRATIVE: CASE EVENT DATE: 20150522
